FAERS Safety Report 11579878 (Version 1)
Quarter: 2015Q3

REPORT INFORMATION
  Report Type: Spontaneous
  Country: FR (occurrence: FR)
  Receive Date: 20150930
  Receipt Date: 20150930
  Transmission Date: 20151125
  Serious: Yes (Hospitalization, Other)
  Sender: FDA-Public Use
  Company Number: FR-PFIZER INC-2015319993

PATIENT
  Age: 45 Year
  Sex: Male

DRUGS (4)
  1. LORMETAZEPAM ACTAVIS [Suspect]
     Active Substance: LORMETAZEPAM
     Dosage: 28 DF OF 2 MG, SINGLE
     Route: 048
  2. DOLIPRANE [Concomitant]
     Active Substance: ACETAMINOPHEN
     Dosage: 6 DF OF 1 G, SINGLE
     Route: 048
  3. XANAX [Suspect]
     Active Substance: ALPRAZOLAM
     Dosage: 30 DF OF 0.50 MG, SINGLE
     Route: 048
  4. BROMAZEPAM [Suspect]
     Active Substance: BROMAZEPAM
     Dosage: 60 DF OF 6 MG, SINGLE
     Route: 048

REACTIONS (4)
  - Toxicity to various agents [Recovered/Resolved]
  - Coma [Recovered/Resolved]
  - Pneumonia aspiration [Recovered/Resolved]
  - Tachycardia [Recovered/Resolved]

NARRATIVE: CASE EVENT DATE: 201507
